FAERS Safety Report 19361323 (Version 7)
Quarter: 2021Q3

REPORT INFORMATION
  Report Type: Spontaneous
  Country: CA (occurrence: CA)
  Receive Date: 20210603
  Receipt Date: 20210928
  Transmission Date: 20211014
  Serious: Yes (Hospitalization, Other)
  Sender: FDA-Public Use
  Company Number: CA-CELLTRION INC.-2021CA001403

PATIENT

DRUGS (12)
  1. INFLECTRA [Suspect]
     Active Substance: INFLIXIMAB-DYYB
     Indication: COLITIS ULCERATIVE
     Dosage: 1 DF, AT 0 WEEK (RECEIVED DOSE IN HOSPITAL)
     Route: 041
     Dates: start: 20201215, end: 20201215
  2. INFLECTRA [Suspect]
     Active Substance: INFLIXIMAB-DYYB
     Dosage: UNK
  3. INFLECTRA [Suspect]
     Active Substance: INFLIXIMAB-DYYB
     Dosage: 315 MG, AT 2, 6 WEEKS THEN EVERY 8 WEEKS
     Route: 041
     Dates: start: 20210528
  4. INFLECTRA [Suspect]
     Active Substance: INFLIXIMAB-DYYB
     Dosage: 315 MG, AT 2, 6 WEEKS THEN EVERY 8 WEEKS
     Route: 041
     Dates: start: 20210102, end: 20210528
  5. INFLECTRA [Suspect]
     Active Substance: INFLIXIMAB-DYYB
     Dosage: 315 MG, AT 2, 6 WEEKS THEN EVERY 8 WEEKS
     Route: 041
     Dates: start: 20210125
  6. INFLECTRA [Suspect]
     Active Substance: INFLIXIMAB-DYYB
     Dosage: 315 MG, AT 2, 6 WEEKS THEN EVERY 8 WEEKS
     Route: 041
     Dates: start: 20210322
  7. INFLECTRA [Suspect]
     Active Substance: INFLIXIMAB-DYYB
     Dosage: 315 MG, AT 2, 6 WEEKS THEN EVERY 8 WEEKS
     Route: 041
     Dates: start: 20210322
  8. IMURAN [Concomitant]
     Active Substance: AZATHIOPRINE
     Dosage: UNK
     Dates: start: 202101
  9. MORPHINE [Concomitant]
     Active Substance: MORPHINE
     Dosage: 1 DF (GIVEN WHILE IN HOSPITAL)
     Dates: start: 20201208
  10. INFLECTRA [Suspect]
     Active Substance: INFLIXIMAB-DYYB
     Dosage: 315 MG, EVERY 6 WEEKS
     Route: 042
     Dates: start: 20210709
  11. PREDNISONE. [Concomitant]
     Active Substance: PREDNISONE
     Dosage: 40 MG (ON TAPERING DOSE)
     Dates: start: 20201208
  12. METHYLPREDNISONE [Concomitant]
     Active Substance: METHYLPREDNISOLONE

REACTIONS (6)
  - Circulatory collapse [Unknown]
  - Drug level decreased [Unknown]
  - Therapeutic response shortened [Unknown]
  - Inappropriate schedule of product administration [Unknown]
  - Condition aggravated [Recovering/Resolving]
  - Seizure [Recovered/Resolved]

NARRATIVE: CASE EVENT DATE: 2021
